FAERS Safety Report 16459516 (Version 1)
Quarter: 2019Q2

REPORT INFORMATION
  Report Type: Spontaneous
  Country: FR (occurrence: FR)
  Receive Date: 20190620
  Receipt Date: 20190620
  Transmission Date: 20190711
  Serious: Yes (Other)
  Sender: FDA-Public Use
  Company Number: FR-AKRON, INC.-2069419

PATIENT
  Age: 62 Year
  Sex: Male

DRUGS (1)
  1. CIPROFLOXACIN HYDROCHLORIDE. [Suspect]
     Active Substance: CIPROFLOXACIN HYDROCHLORIDE
     Indication: URINARY TRACT INFECTION

REACTIONS (3)
  - Axonal neuropathy [Recovering/Resolving]
  - Hypoaesthesia [Recovering/Resolving]
  - Sensory disturbance [Recovering/Resolving]
